FAERS Safety Report 5975157-1 (Version None)
Quarter: 2008Q4

REPORT INFORMATION
  Report Type: 
  Country: None (occurrence: None)
  Receive Date: 20081202
  Receipt Date: 20080905
  Transmission Date: 20090506
  Serious: No
  Sender: FDA-Public Use
  Company Number: US-ABBOTT-08P-163-0458524-00

PATIENT
  Sex: Female
  Weight: 72.64 kg

DRUGS (4)
  1. LUPRON [Suspect]
     Indication: ENDOMETRIOSIS
     Route: 030
     Dates: start: 20080601
  2. NAPROXEN SODIUM [Concomitant]
     Indication: PAIN
     Route: 048
  3. MEFENAMIC ACID [Concomitant]
     Indication: PAIN
     Route: 048
  4. TYLOX [Concomitant]
     Indication: DRUG USE FOR UNKNOWN INDICATION
     Route: 048

REACTIONS (3)
  - BREAST TENDERNESS [None]
  - MENORRHAGIA [None]
  - MUSCLE SPASMS [None]
